FAERS Safety Report 17841424 (Version 1)
Quarter: 2020Q2

REPORT INFORMATION
  Report Type: Spontaneous
  Country: US (occurrence: US)
  Receive Date: 20200529
  Receipt Date: 20200529
  Transmission Date: 20200714
  Serious: Yes (Other)
  Sender: FDA-Public Use
  Company Number: US-GILEAD-2020-0468719

PATIENT
  Age: 56 Year
  Sex: Male
  Weight: 107 kg

DRUGS (26)
  1. ACETAMINOPHEN. [Concomitant]
     Active Substance: ACETAMINOPHEN
  2. AZITHROMYCIN ANHYDROUS. [Concomitant]
     Active Substance: AZITHROMYCIN ANHYDROUS
  3. ROCURONIUM [Concomitant]
     Active Substance: ROCURONIUM BROMIDE
  4. DOPAMINE [Concomitant]
     Active Substance: DOPAMINE HYDROCHLORIDE
     Dosage: 1-7 MCG/KG/MIN
     Dates: start: 20200511
  5. CLONAZEPAM. [Concomitant]
     Active Substance: CLONAZEPAM
  6. DOCUSATE [Concomitant]
     Active Substance: DOCUSATE
  7. FENTANYL. [Concomitant]
     Active Substance: FENTANYL
  8. KETAMINE [Concomitant]
     Active Substance: KETAMINE
  9. PROPOFOL. [Concomitant]
     Active Substance: PROPOFOL
  10. BUMETANIDE. [Concomitant]
     Active Substance: BUMETANIDE
  11. EPOPROSTENOL. [Concomitant]
     Active Substance: EPOPROSTENOL
  12. CEFTRIAXONE. [Concomitant]
     Active Substance: CEFTRIAXONE
  13. FUROSEMIDE. [Concomitant]
     Active Substance: FUROSEMIDE
  14. HYDROMORPHONE [Concomitant]
     Active Substance: HYDROMORPHONE
  15. INSULIN [Concomitant]
     Active Substance: INSULIN NOS
  16. SENNOSIDES. [Concomitant]
     Active Substance: SENNOSIDES
  17. ALBUMIN [Concomitant]
     Active Substance: ALBUMIN HUMAN
  18. REMDESIVIR. [Suspect]
     Active Substance: REMDESIVIR
     Indication: COVID-19
     Dosage: 200 MG, ONCE
     Route: 042
     Dates: start: 20200511, end: 20200511
  19. REMDESIVIR. [Suspect]
     Active Substance: REMDESIVIR
     Dosage: 100 MG, QD
     Route: 042
     Dates: start: 20200512, end: 20200514
  20. DESMOPRESSIN [Concomitant]
     Active Substance: DESMOPRESSIN
  21. ENOXAPARIN [Concomitant]
     Active Substance: ENOXAPARIN
  22. HEPARIN [Concomitant]
     Active Substance: HEPARIN SODIUM
  23. MIDODRINE [Concomitant]
     Active Substance: MIDODRINE
  24. NOREPINEPHRINE. [Concomitant]
     Active Substance: NOREPINEPHRINE
     Dosage: 2-10 MCG/MIN
     Dates: start: 20200511, end: 20200513
  25. FAMOTIDINE. [Concomitant]
     Active Substance: FAMOTIDINE
  26. PHENYLEPHRINE [Concomitant]
     Active Substance: PHENYLEPHRINE HYDROCHLORIDE
     Dosage: 25-50 MCG/MIN
     Dates: start: 20200511

REACTIONS (1)
  - Acute kidney injury [Not Recovered/Not Resolved]

NARRATIVE: CASE EVENT DATE: 20200514
